FAERS Safety Report 9355318 (Version 1)
Quarter: 2013Q2

REPORT INFORMATION
  Report Type: Spontaneous
  Country: US (occurrence: US)
  Receive Date: 20130619
  Receipt Date: 20130619
  Transmission Date: 20140414
  Serious: No
  Sender: FDA-Public Use
  Company Number: US-PFIZER INC-2013179770

PATIENT
  Sex: 0

DRUGS (20)
  1. PROTONIX [Suspect]
     Dosage: UNK
  2. AMPICILLIN [Suspect]
     Dosage: UNK
  3. CLEOCIN [Suspect]
     Dosage: UNK
  4. ERYTHROMYCIN [Suspect]
  5. NEURONTIN [Suspect]
     Dosage: UNK
  6. NEOSPORIN [Suspect]
     Dosage: UNK
  7. ZESTRIL [Suspect]
     Dosage: UNK
  8. LIDODERM [Suspect]
     Dosage: UNK
  9. ACTONEL [Suspect]
     Dosage: UNK
  10. QUININE SULFATE [Suspect]
     Dosage: UNK
  11. ZOCOR [Suspect]
     Dosage: UNK
  12. KEFLEX [Suspect]
     Dosage: UNK
  13. ULTRAM [Suspect]
     Dosage: UNK
  14. TRIPLE ANTIBIOTIC [Suspect]
     Dosage: UNK
  15. DARVON [Suspect]
     Dosage: UNK
  16. CODEINE [Suspect]
     Dosage: UNK
  17. PERCODAN [Suspect]
     Dosage: UNK
  18. CECLOR [Suspect]
     Dosage: UNK
  19. LEVAQUIN [Suspect]
     Dosage: UNK
  20. FOSAMAX [Suspect]
     Dosage: UNK

REACTIONS (1)
  - Drug hypersensitivity [Unknown]
